FAERS Safety Report 16413630 (Version 2)
Quarter: 2020Q3

REPORT INFORMATION
  Report Type: Spontaneous
  Country: NL (occurrence: NL)
  Receive Date: 20190611
  Receipt Date: 20200924
  Transmission Date: 20201102
  Serious: Yes (Hospitalization)
  Sender: FDA-Public Use
  Company Number: NL-TEVA-2019-NL-1060827

PATIENT
  Age: 79 Year
  Sex: Female
  Weight: 85 kg

DRUGS (5)
  1. NAPROXEN TABLET 250 MG (MILLIGRAM) [Suspect]
     Active Substance: NAPROXEN
     Indication: ARTHRALGIA
     Dosage: 500 MILLIGRAM DAILY; 2 X 1 TABLET 250 MILLIGRAMS
     Dates: start: 20190402, end: 20190404
  2. MULTIVITAMINEN [Concomitant]
     Dosage: THERAPY START DATE:ASKED BUT UNKNOWN?THERAPY END DATE :ASKED BUT UNKNOWN
  3. DILTIAZEM HYDROCHLORIDE / BRAND NAME NOT SPECIFIED [Concomitant]
     Dosage: THERAPY START DATE:ASKED BUT UNKNOWN?THERAPY END DATE :ASKED BUT UNKNOWN
  4. ACETYLSALICYLZUUR / BRAND NAME NOT SPECIFIED [Concomitant]
     Dosage: THERAPY START DATE:ASKED BUT UNKNOWN?THERAPY END DATE :ASKED BUT UNKNOWN
  5. ISOSORBIDEMONONITRAAT TABLET 10MG / BRAND NAME NOT SPECIFIED [Concomitant]
     Dosage: THERAPY START DATE:ASKED BUT UNKNOWN?THERAPY END DATE :ASKED BUT UNKNOWN

REACTIONS (1)
  - Diverticulitis [Recovered/Resolved]

NARRATIVE: CASE EVENT DATE: 20190402
